FAERS Safety Report 10473534 (Version 2)
Quarter: 2014Q3

REPORT INFORMATION
  Report Type: Spontaneous
  Country: US (occurrence: US)
  Receive Date: 20140924
  Receipt Date: 20140924
  Transmission Date: 20150326
  Serious: Yes (Death, Hospitalization, Other)
  Sender: FDA-Public Use
  Company Number: US-009507513-0608USA02225

PATIENT
  Sex: Female

DRUGS (6)
  1. FOSAMAX [Suspect]
     Active Substance: ALENDRONATE SODIUM
     Indication: OSTEOPOROSIS
     Dosage: 10 MG, QD
     Route: 048
     Dates: start: 19981015, end: 2002
  2. MACROBID [Concomitant]
     Active Substance: NITROFURANTOIN\NITROFURANTOIN MONOHYDRATE
     Indication: URINARY TRACT INFECTION
     Dosage: 100 MG, BID
     Route: 048
     Dates: start: 19981015, end: 19981020
  3. FOSAMAX [Suspect]
     Active Substance: ALENDRONATE SODIUM
     Dosage: 70 MG, UNK
     Route: 048
     Dates: start: 20020531, end: 2003
  4. FOSAMAX [Suspect]
     Active Substance: ALENDRONATE SODIUM
     Dosage: 70 MG, UNK
     Route: 048
     Dates: start: 2003, end: 200507
  5. THERAPY UNSPECIFIED [Concomitant]
     Active Substance: UNSPECIFIED INGREDIENT
     Indication: HYPERTENSION
     Dates: start: 1996, end: 20020101
  6. DETROL [Concomitant]
     Active Substance: TOLTERODINE TARTRATE
     Dates: start: 19981015

REACTIONS (23)
  - Osteonecrosis of jaw [Not Recovered/Not Resolved]
  - Cellulitis [Unknown]
  - Asthenia [Unknown]
  - Constipation [Unknown]
  - Upper limb fracture [Unknown]
  - Petechiae [Unknown]
  - Hip fracture [Unknown]
  - Skin cancer [Unknown]
  - Abscess [Unknown]
  - Dizziness [Unknown]
  - Fall [Unknown]
  - Osteoarthritis [Unknown]
  - Papule [Unknown]
  - Anxiety [Not Recovered/Not Resolved]
  - Weight decreased [Unknown]
  - Syncope [Unknown]
  - Seborrhoeic keratosis [Unknown]
  - Arthropathy [Unknown]
  - Hip fracture [Unknown]
  - Death [Fatal]
  - Osteomyelitis [Not Recovered/Not Resolved]
  - Aortic aneurysm [Unknown]
  - Fungal infection [Unknown]

NARRATIVE: CASE EVENT DATE: 19981020
